FAERS Safety Report 5799708-5 (Version None)
Quarter: 2008Q3

REPORT INFORMATION
  Report Type: 
  Country: None (occurrence: None)
  Receive Date: 20080702
  Receipt Date: 20080702
  Transmission Date: 20090109
  Serious: Yes (Other)
  Sender: FDA-Public Use
  Company Number: None

PATIENT
  Age: 85 Year
  Sex: Female

DRUGS (1)
  1. DIGITEK TABS 0.125MG AMIDE(BERTEK) [Suspect]
     Indication: ARRHYTHMIA
     Dosage: TAKE 1 TABLET DAILY, SEVERAL YEARS (PATIENT COULD NOT GIVE ACCURATE TIME PERIOD)

REACTIONS (5)
  - FALL [None]
  - GAIT DISTURBANCE [None]
  - HEAD INJURY [None]
  - PHARMACEUTICAL PRODUCT COMPLAINT [None]
  - VERTIGO [None]
